FAERS Safety Report 24726842 (Version 2)
Quarter: 2024Q4

REPORT INFORMATION
  Report Type: Spontaneous
  Country: FI (occurrence: FI)
  Receive Date: 20241212
  Receipt Date: 20241219
  Transmission Date: 20250115
  Serious: Yes (Disabling)
  Sender: PFIZER
  Company Number: None

PATIENT
  Age: 48 Year
  Sex: Female

DRUGS (1)
  1. PAXLOVID [Suspect]
     Active Substance: NIRMATRELVIR\RITONAVIR
     Indication: COVID-19 treatment
     Dosage: [NIRMATRELVIR 300 MG]/[RITONAVIR 100 MG]; 2X/DAY
     Route: 048
     Dates: start: 20241129, end: 20241203

REACTIONS (9)
  - Dysgeusia [Recovering/Resolving]
  - Product taste abnormal [Recovering/Resolving]
  - Taste disorder [Recovering/Resolving]
  - Breath odour [Recovering/Resolving]
  - Nausea [Recovering/Resolving]
  - Headache [Recovering/Resolving]
  - Abdominal discomfort [Recovering/Resolving]
  - Flatulence [Recovering/Resolving]
  - Diarrhoea [Recovering/Resolving]

NARRATIVE: CASE EVENT DATE: 20241129
